FAERS Safety Report 15650325 (Version 4)
Quarter: 2021Q1

REPORT INFORMATION
  Report Type: Spontaneous
  Country: JP (occurrence: JP)
  Receive Date: 20181123
  Receipt Date: 20210112
  Transmission Date: 20210419
  Serious: Yes (Hospitalization, Other)
  Sender: FDA-Public Use
  Company Number: JP-BRISTOL-MYERS SQUIBB COMPANY-BMS-2018-093648

PATIENT
  Age: 72 Year
  Sex: Male

DRUGS (1)
  1. OPDIVO [Suspect]
     Active Substance: NIVOLUMAB
     Indication: NON-SMALL CELL LUNG CANCER
     Dosage: 180 MG/DAY
     Route: 041
     Dates: start: 20170613, end: 20170926

REACTIONS (5)
  - Osteomyelitis [Recovered/Resolved]
  - Immune-mediated hepatic disorder [Unknown]
  - Malaise [Unknown]
  - Adrenal insufficiency [Unknown]
  - Decreased appetite [Unknown]

NARRATIVE: CASE EVENT DATE: 2017
